FAERS Safety Report 7126492-5 (Version None)
Quarter: 2010Q4

REPORT INFORMATION
  Report Type: 
  Country: None (occurrence: None)
  Receive Date: 20101129
  Receipt Date: 20101118
  Transmission Date: 20110411
  Serious: Yes (Other)
  Sender: FDA-Public Use
  Company Number: IE-B.I. PHARMACEUTICALS,INC./RIDGEFIELD-2010-UK-01119UK

PATIENT
  Age: 56 Year
  Sex: Female

DRUGS (2)
  1. MICARDIS HCT [Suspect]
     Indication: HYPERTENSION
     Dosage: 40/12.5MG (62.5MG 1 IN 1 D)
     Route: 048
     Dates: start: 20101018, end: 20101028
  2. CRESTOR [Concomitant]
     Indication: HYPERCHOLESTEROLAEMIA
     Dosage: 20 MG

REACTIONS (3)
  - EXERCISE TOLERANCE DECREASED [None]
  - FATIGUE [None]
  - PALPITATIONS [None]
